FAERS Safety Report 10785325 (Version 3)
Quarter: 2015Q1

REPORT INFORMATION
  Report Type: Spontaneous
  Country: JP (occurrence: None)
  Receive Date: 20150209
  Receipt Date: 20150310
  Transmission Date: 20150721
  Serious: Yes (Death)
  Sender: FDA-Public Use
  Company Number: 2015BCR00018

PATIENT
  Age: 89 Year
  Sex: Female

DRUGS (12)
  1. GRACEVIT [Suspect]
     Active Substance: SITAFLOXACIN
     Indication: PROPHYLAXIS
     Route: 048
     Dates: start: 20150121, end: 20150121
  2. LANSOPRAZOLE OD [Concomitant]
     Active Substance: LANSOPRAZOLE
  3. DONEPEZIL HYDROCHLORIDE. [Concomitant]
     Active Substance: DONEPEZIL HYDROCHLORIDE
  4. PERDIPINE LA (NICARDIPINE HYDROCHLORIDE) [Concomitant]
  5. RAPIACTA [Suspect]
     Active Substance: PERAMIVIR
     Indication: INFLUENZA
     Route: 042
     Dates: start: 20150121, end: 20150121
  6. ALFACALCIDOL [Concomitant]
     Active Substance: ALFACALCIDOL
  7. HALCION (TRIAZOLAM) [Concomitant]
  8. DEPAS (ETIZOLAM) [Concomitant]
  9. GRACEVIT [Suspect]
     Active Substance: SITAFLOXACIN
     Indication: INFLUENZA
     Route: 048
     Dates: start: 20150121, end: 20150121
  10. CALONAL [Concomitant]
     Active Substance: ACETAMINOPHEN
  11. BISOPROLOL FUMARATE. [Concomitant]
     Active Substance: BISOPROLOL FUMARATE
  12. BAYASPIRIN [Concomitant]
     Active Substance: ASPIRIN

REACTIONS (4)
  - Blood pressure decreased [None]
  - Shock [None]
  - Respiratory arrest [None]
  - Cardiac death [None]

NARRATIVE: CASE EVENT DATE: 20150122
